FAERS Safety Report 9108441 (Version 1)
Quarter: 2013Q1

REPORT INFORMATION
  Report Type: Spontaneous
  Country: GB (occurrence: GB)
  Receive Date: 20130222
  Receipt Date: 20130222
  Transmission Date: 20140127
  Serious: Yes (Life-Threatening, Hospitalization, Disabling, Other)
  Sender: FDA-Public Use
  Company Number: GB-B.I. PHARMACEUTICALS,INC./RIDGEFIELD-2013-UK-00234UK

PATIENT
  Age: 81 Year
  Sex: Female
  Weight: 64 kg

DRUGS (15)
  1. PRADAXA [Suspect]
     Indication: ATRIAL FIBRILLATION
     Dosage: 220 MG
     Route: 048
     Dates: start: 20130119
  2. PRADAXA [Suspect]
     Indication: CEREBROVASCULAR ACCIDENT PROPHYLAXIS
  3. ADALAT LA [Concomitant]
  4. ADCAL-D3 [Concomitant]
  5. ALENDRONATE [Concomitant]
  6. ATENOLOL [Concomitant]
  7. CIPROFIBRATE [Concomitant]
  8. DIGOXIN [Concomitant]
  9. FUROSEMIDE [Concomitant]
  10. GTN [Concomitant]
  11. LORATADINE [Concomitant]
  12. OMEPRAZOLE [Concomitant]
  13. PREDNISOLONE [Concomitant]
  14. SALBUTAMOL [Concomitant]
  15. WARFARIN [Concomitant]
     Dates: end: 20130117

REACTIONS (1)
  - Cerebrovascular accident [Not Recovered/Not Resolved]
